FAERS Safety Report 5623501-7 (Version None)
Quarter: 2008Q1

REPORT INFORMATION
  Report Type: 
  Country: None (occurrence: None)
  Receive Date: 20080212
  Receipt Date: 20080201
  Transmission Date: 20080703
  Serious: Yes (Disabling)
  Sender: FDA-Public Use
  Company Number: US-ELI_LILLY_AND_COMPANY-US200801002690

PATIENT
  Sex: Female

DRUGS (1)
  1. BYETTA [Suspect]
     Dosage: UNK, UNKNOWN

REACTIONS (5)
  - ANXIETY [None]
  - COGNITIVE DISORDER [None]
  - DEPRESSION [None]
  - JOINT DISLOCATION [None]
  - POST-TRAUMATIC STRESS DISORDER [None]
